FAERS Safety Report 13513234 (Version 2)
Quarter: 2017Q2

REPORT INFORMATION
  Report Type: Spontaneous
  Country: CA (occurrence: CA)
  Receive Date: 20170504
  Receipt Date: 20170516
  Transmission Date: 20170830
  Serious: Yes (Other)
  Sender: FDA-Public Use
  Company Number: CA-CIPLA LTD.-2017CA07893

PATIENT

DRUGS (26)
  1. LEVOTHYROXINE. [Interacting]
     Active Substance: LEVOTHYROXINE
     Dosage: 75 ?G/DAY
     Route: 065
     Dates: start: 201301
  2. LEVOTHYROXINE. [Interacting]
     Active Substance: LEVOTHYROXINE
     Dosage: 125 ?G/DAY
     Route: 065
     Dates: start: 201310
  3. RITONAVIR. [Interacting]
     Active Substance: RITONAVIR
     Dosage: UNK
     Route: 065
     Dates: start: 201010, end: 201408
  4. EMTRICITABINE [Suspect]
     Active Substance: EMTRICITABINE
     Indication: HIV INFECTION
     Dosage: UNK
     Route: 048
     Dates: start: 201004
  5. ABACAVIR. [Suspect]
     Active Substance: ABACAVIR
     Indication: HIV INFECTION
     Dosage: UNK
     Route: 065
     Dates: start: 201010, end: 201408
  6. LAMIVUDINE. [Suspect]
     Active Substance: LAMIVUDINE
     Dosage: 300 MG, 1 TABLET DAILY
     Route: 065
  7. LOPINAVIR [Suspect]
     Active Substance: LOPINAVIR
     Dosage: 200 MG, BID, 2 TABLETS TWICE DAILY
     Route: 065
  8. LEVOTHYROXINE. [Interacting]
     Active Substance: LEVOTHYROXINE
     Indication: POST PROCEDURAL HYPOTHYROIDISM
     Dosage: 75 ?G/DAY
     Route: 048
     Dates: start: 201209
  9. LEVOTHYROXINE. [Interacting]
     Active Substance: LEVOTHYROXINE
     Dosage: 137 ?G/DAY
     Route: 065
     Dates: start: 201311
  10. LEVOTHYROXINE. [Interacting]
     Active Substance: LEVOTHYROXINE
     Dosage: 150 ?G/DAY
     Route: 065
     Dates: start: 201404
  11. TENOFOVIR [Suspect]
     Active Substance: TENOFOVIR
     Indication: HIV INFECTION
     Dosage: UNK
     Route: 048
     Dates: start: 201004
  12. DARUNAVIR [Suspect]
     Active Substance: DARUNAVIR
     Indication: HIV INFECTION
     Dosage: UNK
     Route: 065
     Dates: start: 201404, end: 201408
  13. RITONAVIR. [Suspect]
     Active Substance: RITONAVIR
     Indication: HIV INFECTION
     Dosage: UNK
     Route: 048
     Dates: start: 201004
  14. LOPINAVIR [Suspect]
     Active Substance: LOPINAVIR
     Dosage: UNK
     Route: 065
     Dates: start: 201010, end: 201404
  15. RITONAVIR. [Interacting]
     Active Substance: RITONAVIR
     Dosage: 50 MG, BID, 2 TABLETS TWICE DAILY
     Route: 065
  16. LEVOTHYROXINE. [Interacting]
     Active Substance: LEVOTHYROXINE
     Dosage: 150 ?G/DAY
     Route: 065
     Dates: start: 201408
  17. FERROUS SULFATE. [Suspect]
     Active Substance: FERROUS SULFATE
     Dosage: 300 MG, DAILY
     Route: 065
  18. LOPINAVIR [Suspect]
     Active Substance: LOPINAVIR
     Indication: HIV INFECTION
     Dosage: UNK
     Route: 048
     Dates: start: 201004
  19. LEVOTHYROXINE. [Interacting]
     Active Substance: LEVOTHYROXINE
     Dosage: 75 ?G/DAY
     Route: 065
     Dates: start: 201210
  20. LEVOTHYROXINE. [Interacting]
     Active Substance: LEVOTHYROXINE
     Dosage: 125 ?G/DAY
     Route: 065
     Dates: start: 201412
  21. LEVOTHYROXINE. [Interacting]
     Active Substance: LEVOTHYROXINE
     Dosage: 125 ?G/DAY
     Route: 065
     Dates: start: 201606
  22. ABACAVIR. [Suspect]
     Active Substance: ABACAVIR
     Dosage: 600 MG,1 TABLET DAILY
     Route: 065
  23. LAMIVUDINE. [Suspect]
     Active Substance: LAMIVUDINE
     Indication: HIV INFECTION
     Dosage: UNK
     Route: 065
     Dates: start: 201010, end: 201408
  24. LEVOTHYROXINE. [Interacting]
     Active Substance: LEVOTHYROXINE
     Dosage: 100 ?G/DAY
     Route: 065
     Dates: start: 201304
  25. LEVOTHYROXINE. [Interacting]
     Active Substance: LEVOTHYROXINE
     Dosage: 125 ?G/DAY
     Route: 065
     Dates: start: 201306
  26. LEVOTHYROXINE. [Interacting]
     Active Substance: LEVOTHYROXINE
     Dosage: 175 ?G/DAY
     Route: 065
     Dates: start: 201311

REACTIONS (6)
  - Drug interaction [Unknown]
  - Hypothyroidic goitre [Unknown]
  - Dysphagia [Unknown]
  - Odynophagia [Unknown]
  - Iron deficiency anaemia [Unknown]
  - Exposure during pregnancy [Unknown]
